FAERS Safety Report 5785153-5 (Version None)
Quarter: 2008Q2

REPORT INFORMATION
  Report Type: 
  Country: None (occurrence: None)
  Receive Date: 20080624
  Receipt Date: 20070322
  Transmission Date: 20081010
  Serious: No
  Sender: FDA-Public Use
  Company Number: US-ASTRAZENECA-2007UW05679

PATIENT
  Age: 71 Year
  Sex: Female
  Weight: 64.4 kg

DRUGS (1)
  1. PULMICORT [Suspect]
     Indication: ASTHMA
     Route: 055

REACTIONS (4)
  - DYSPNOEA [None]
  - GINGIVAL RECESSION [None]
  - GINGIVAL SWELLING [None]
  - INSOMNIA [None]
